FAERS Safety Report 6365100-8 (Version None)
Quarter: 2009Q3

REPORT INFORMATION
  Report Type: 
  Country: None (occurrence: None)
  Receive Date: 20090919
  Receipt Date: 20090804
  Transmission Date: 20100115
  Serious: No
  Sender: FDA-Public Use
  Company Number: US-ABBOTT-09P-163-0589901-00

PATIENT
  Sex: Male
  Weight: 94.886 kg

DRUGS (2)
  1. HUMIRA [Suspect]
     Indication: COLITIS ULCERATIVE
     Dates: start: 20080201
  2. AMBIEN [Concomitant]
     Indication: SLEEP DISORDER

REACTIONS (1)
  - ARTHRALGIA [None]
